FAERS Safety Report 15769121 (Version 1)
Quarter: 2018Q4

REPORT INFORMATION
  Report Type: Spontaneous
  Country: US (occurrence: US)
  Receive Date: 20181224
  Receipt Date: 20181224
  Transmission Date: 20190205
  Serious: No
  Sender: FDA-Public Use
  Company Number: None

PATIENT

DRUGS (1)
  1. ACETAMINOPHEN ACETAMINOPHEN [Suspect]
     Active Substance: ACETAMINOPHEN
     Dosage: FORM: SOLUTION?TYPE BOTTLE 237 ML
     Route: 048

REACTIONS (2)
  - Product label confusion [None]
  - Circumstance or information capable of leading to medication error [None]
